FAERS Safety Report 21484261 (Version 1)
Quarter: 2022Q4

REPORT INFORMATION
  Report Type: Spontaneous
  Country: US (occurrence: US)
  Receive Date: 20221020
  Receipt Date: 20221020
  Transmission Date: 20230112
  Serious: No
  Sender: FDA-Public Use
  Company Number: US-Zogenix International Limited, A wholly owned subsidiary of Zogenix, Inc.-2022ZX000790

PATIENT
  Age: 20 Year
  Sex: Female

DRUGS (2)
  1. FINTEPLA [Suspect]
     Active Substance: FENFLURAMINE
     Indication: Product used for unknown indication
     Dosage: ABOUT A WEEK OF USE
     Route: 048
  2. FINTEPLA [Suspect]
     Active Substance: FENFLURAMINE
     Dosage: DECREASED THE DOSE OF THE FINTEPLA AND ULTIMATELY STOPPED THERAPY
     Route: 048
     Dates: start: 20220614, end: 20220621

REACTIONS (5)
  - Mania [Unknown]
  - Seizure [Unknown]
  - Abnormal behaviour [Unknown]
  - Irritability [Unknown]
  - Drug ineffective [Unknown]

NARRATIVE: CASE EVENT DATE: 20220616
